FAERS Safety Report 20429626 (Version 1)
Quarter: 2022Q1

REPORT INFORMATION
  Report Type: Report from Study
  Country: US (occurrence: US)
  Receive Date: 20220204
  Receipt Date: 20220204
  Transmission Date: 20220423
  Serious: Yes (Hospitalization)
  Sender: FDA-Public Use
  Company Number: None

PATIENT

DRUGS (8)
  1. ONCASPAR [Suspect]
     Active Substance: PEGASPARGASE
     Indication: Acute lymphocytic leukaemia
     Dosage: 7500 IU(2000 IU/M2) ON DAY 4
     Route: 042
     Dates: start: 20181121, end: 20190109
  2. CYTARABINE [Suspect]
     Active Substance: CYTARABINE
     Indication: Acute lymphocytic leukaemia
     Dosage: 1200 MG, UNKNOWN
     Route: 037
     Dates: start: 20181107, end: 20181117
  3. METHOTREXATE [Suspect]
     Active Substance: METHOTREXATE
     Indication: Acute lymphocytic leukaemia
     Dosage: UNK MG, EVERY 3 WEEKS
     Route: 037
     Dates: start: 20180922, end: 20181019
  4. METHOTREXATE [Suspect]
     Active Substance: METHOTREXATE
     Dosage: 100 MG, UNKNOWN
     Route: 042
     Dates: start: 20181107, end: 20181115
  5. DEXAMETHASONE [Suspect]
     Active Substance: DEXAMETHASONE
     Indication: Acute lymphocytic leukaemia
     Dosage: 5 MG/M2, BID
     Dates: start: 20180922, end: 20181019
  6. DAUNORUBICIN [Suspect]
     Active Substance: DAUNORUBICIN
     Indication: Acute lymphocytic leukaemia
     Dosage: 25 MG/M2, EVERY 1 WEEK
     Route: 065
     Dates: start: 20180922, end: 20181019
  7. VINCRISTINE [Suspect]
     Active Substance: VINCRISTINE
     Indication: Acute lymphocytic leukaemia
     Dosage: 1.5 MG/M2, EVERY 1 WEEK
     Route: 065
     Dates: start: 20180922, end: 20181019
  8. CYCLOPHOSPHAMIDE [Suspect]
     Active Substance: CYCLOPHOSPHAMIDE
     Indication: Acute lymphocytic leukaemia
     Dosage: 2050 MG, ONE DOSE
     Route: 065
     Dates: start: 20181107

REACTIONS (10)
  - Transaminases increased [Unknown]
  - Steatohepatitis [Unknown]
  - Ascites [Unknown]
  - Enterococcal infection [Unknown]
  - Bone marrow infiltration [Unknown]
  - Leukaemia recurrent [Unknown]
  - Anaemia [Unknown]
  - Thrombocytopenia [Unknown]
  - Gait disturbance [Unknown]
  - Muscular weakness [Unknown]

NARRATIVE: CASE EVENT DATE: 20190101
